FAERS Safety Report 6929787-0 (Version None)
Quarter: 2010Q3

REPORT INFORMATION
  Report Type: 
  Country: None (occurrence: None)
  Receive Date: 20100818
  Receipt Date: 20100804
  Transmission Date: 20110219
  Serious: Yes (Hospitalization)
  Sender: FDA-Public Use
  Company Number: PHHY2010TR52422

PATIENT
  Age: 16 Year
  Sex: Male

DRUGS (6)
  1. OXCARBAZEPINE [Suspect]
     Indication: EPILEPSY
     Dosage: UNK
     Route: 048
  2. WARFARIN [Interacting]
     Dosage: 10 MG, UNK
  3. WARFARIN [Interacting]
     Dosage: 15 MG, DAILY
     Route: 048
  4. WARFARIN [Interacting]
     Dosage: 20 MG, DAILY
     Route: 048
  5. ASPIRIN [Concomitant]
     Dosage: UNK
  6. CLOPIDOGREL [Concomitant]
     Dosage: UNK

REACTIONS (3)
  - DRUG INTERACTION [None]
  - DRUG RESISTANCE [None]
  - INTERNATIONAL NORMALISED RATIO DECREASED [None]
